FAERS Safety Report 15887927 (Version 1)
Quarter: 2019Q1

REPORT INFORMATION
  Report Type: Spontaneous
  Country: CN (occurrence: CN)
  Receive Date: 20190130
  Receipt Date: 20190130
  Transmission Date: 20190417
  Serious: Yes (Hospitalization)
  Sender: FDA-Public Use
  Company Number: CN-ROCHE-2255420

PATIENT
  Sex: Female
  Weight: 50 kg

DRUGS (2)
  1. XELODA [Suspect]
     Active Substance: CAPECITABINE
     Indication: BREAST CANCER
     Route: 048
     Dates: start: 20180829
  2. XELODA [Suspect]
     Active Substance: CAPECITABINE
     Indication: METASTASIS

REACTIONS (2)
  - Pigmentation disorder [Unknown]
  - Dermatitis exfoliative [Unknown]
